FAERS Safety Report 4962045-2 (Version None)
Quarter: 2006Q2

REPORT INFORMATION
  Report Type: 
  Country: None (occurrence: None)
  Receive Date: 20060404
  Receipt Date: 20051215
  Transmission Date: 20061013
  Serious: Yes (Hospitalization)
  Sender: FDA-Public Use
  Company Number: US-MERCK-0512USA02528

PATIENT
  Age: 73 Year
  Sex: Female
  Weight: 107 kg

DRUGS (9)
  1. VIOXX [Suspect]
     Indication: ARTHRITIS
     Route: 048
     Dates: start: 19990101, end: 20031101
  2. K-DUR 10 [Concomitant]
     Route: 065
     Dates: start: 19980101
  3. ZYRTEC [Concomitant]
     Route: 065
  4. ISOSORBIDE DINITRATE [Concomitant]
     Route: 065
     Dates: start: 19990101
  5. FOLIC ACID [Concomitant]
     Route: 065
     Dates: start: 20020101
  6. CARAFATE [Concomitant]
     Route: 065
  7. FEOSOL [Concomitant]
     Route: 065
     Dates: start: 19980101
  8. CENTRUM [Concomitant]
     Route: 065
     Dates: start: 19970101
  9. DEMADEX [Concomitant]
     Route: 065
     Dates: start: 19800101

REACTIONS (16)
  - ANAL HAEMORRHAGE [None]
  - ARTERIOSCLEROSIS CORONARY ARTERY [None]
  - ASTHENIA [None]
  - ATRIAL FIBRILLATION [None]
  - CAROTID ARTERY DISEASE [None]
  - CAROTID ARTERY STENOSIS [None]
  - CEREBRAL ARTERY EMBOLISM [None]
  - CEREBRAL ATROPHY [None]
  - CEREBRAL INFARCTION [None]
  - CEREBRAL ISCHAEMIA [None]
  - CEREBROVASCULAR ACCIDENT [None]
  - DIZZINESS [None]
  - EMBOLIC CEREBRAL INFARCTION [None]
  - LACUNAR INFARCTION [None]
  - PERIPHERAL VASCULAR DISORDER [None]
  - RECTAL HAEMORRHAGE [None]
